FAERS Safety Report 17618086 (Version 1)
Quarter: 2020Q2

REPORT INFORMATION
  Report Type: Spontaneous
  Country: FR (occurrence: FR)
  Receive Date: 20200402
  Receipt Date: 20200402
  Transmission Date: 20200713
  Serious: Yes (Hospitalization, Other)
  Sender: FDA-Public Use
  Company Number: FR-PFIZER INC-2020132617

PATIENT
  Age: 87 Year
  Sex: Female

DRUGS (15)
  1. PREVISCAN [FLUINDIONE] [Concomitant]
     Active Substance: FLUINDIONE
     Dosage: UNK (0.5 IN THE MORNING AND 0.75 AT NIGHT)
     Route: 048
  2. PREGABALIN. [Suspect]
     Active Substance: PREGABALIN
     Dosage: 150 MG, 1X/DAY (QD)
     Route: 048
  3. IRBESARTAN. [Suspect]
     Active Substance: IRBESARTAN
     Indication: HYPERTENSION
     Dosage: 150 MG, 1X/DAY (QD)
     Route: 048
  4. ESIDREX [Suspect]
     Active Substance: HYDROCHLOROTHIAZIDE
     Indication: HYPERTENSION
     Dosage: 1 DF, 1X/DAY (QD)
     Route: 048
  5. AMIODARONE [Suspect]
     Active Substance: AMIODARONE
     Indication: ARRHYTHMIA
     Dosage: 200 MG, 1X/DAY (QD)
     Route: 048
     Dates: end: 20190817
  6. FUROSEMIDE. [Suspect]
     Active Substance: FUROSEMIDE
     Indication: HYPERTENSION
     Dosage: 40 MG, 1X/DAY (QD)
     Route: 048
     Dates: start: 20190807
  7. DAFALGAN [Concomitant]
     Active Substance: ACETAMINOPHEN
     Dosage: 4 DF, 1X/DAY (QD)
  8. MADOPAR [Concomitant]
     Active Substance: BENSERAZIDE HYDROCHLORIDE\LEVODOPA
     Dosage: 3 DF, 1X/DAY (QD)
     Route: 048
  9. PREGABALIN. [Suspect]
     Active Substance: PREGABALIN
     Dosage: 50 MG, 1X/DAY (QD)
     Route: 048
  10. BISOCE [Suspect]
     Active Substance: BISOPROLOL
     Indication: HYPERTENSION
     Dosage: 1 DF, 1X/DAY (QD)
     Route: 048
     Dates: end: 20190817
  11. DAFALGAN [Concomitant]
     Active Substance: ACETAMINOPHEN
     Dosage: UNK
     Route: 048
  12. AMLODIPINE BESILATE [Suspect]
     Active Substance: AMLODIPINE BESYLATE
     Indication: HYPERTENSION
     Dosage: 5 MG, 1X/DAY (QD)
     Route: 048
     Dates: start: 20190727
  13. ORAMORPH SR SUSTAINED RELEASE [Concomitant]
     Active Substance: MORPHINE SULFATE
     Dosage: UNK
     Route: 048
  14. LEVOTHYROX [Concomitant]
     Active Substance: LEVOTHYROXINE
     Dosage: 1 DF, 1X/DAY (QD)
     Route: 048
  15. SOLU-MEDROL [Suspect]
     Active Substance: METHYLPREDNISOLONE SODIUM SUCCINATE
     Dosage: UNK
     Route: 042
     Dates: start: 20190810

REACTIONS (4)
  - Loss of consciousness [Recovered/Resolved]
  - Malaise [Recovered/Resolved]
  - Apnoea [Recovered/Resolved]
  - Bradycardia [Recovering/Resolving]

NARRATIVE: CASE EVENT DATE: 20190817
